FAERS Safety Report 21779518 (Version 2)
Quarter: 2023Q1

REPORT INFORMATION
  Report Type: Spontaneous
  Country: BR (occurrence: BR)
  Receive Date: 20221226
  Receipt Date: 20230108
  Transmission Date: 20230418
  Serious: Yes (Other)
  Sender: FDA-Public Use
  Company Number: BR-BAXTER-2022BAX031289

PATIENT
  Sex: Female

DRUGS (2)
  1. IRON [Suspect]
     Active Substance: IRON
     Dosage: 2 AMPOULES DILUTED IN 500 ML OF SALINE SOLUTION IN 1 AND HALF HOUR, SINGLE DOSE
     Route: 042
     Dates: start: 20221031, end: 20221031
  2. SODIUM CHLORIDE [Suspect]
     Active Substance: SODIUM CHLORIDE
     Indication: Medication dilution
     Dosage: 500 ML, SINGLE DOSE
     Route: 042
     Dates: start: 20221031, end: 20221031

REACTIONS (7)
  - Face oedema [Recovered/Resolved]
  - Erythema [Recovered/Resolved]
  - Oedema peripheral [Recovered/Resolved]
  - Abdominal pain [Recovered/Resolved]
  - Pruritus [Recovered/Resolved]
  - Off label use [Recovered/Resolved]
  - Exposure during pregnancy [Recovered/Resolved]

NARRATIVE: CASE EVENT DATE: 20221031
